FAERS Safety Report 6129872-X (Version None)
Quarter: 2009Q1

REPORT INFORMATION
  Report Type: 
  Country: None (occurrence: None)
  Receive Date: 20090324
  Receipt Date: 20090318
  Transmission Date: 20090719
  Serious: Yes (Hospitalization)
  Sender: FDA-Public Use
  Company Number: US-GILEAD-2009-0020942

PATIENT
  Sex: Female
  Weight: 57.658 kg

DRUGS (21)
  1. LETAIRIS [Suspect]
     Indication: PULMONARY ARTERIAL HYPERTENSION
     Route: 048
     Dates: start: 20080327
  2. REMODULIN [Concomitant]
  3. REVATIO [Concomitant]
  4. OXYGEN [Concomitant]
  5. ASPIRIN [Concomitant]
  6. RAPAMUNE [Concomitant]
  7. DEMADEX [Concomitant]
  8. NITRO-BID [Concomitant]
  9. ZOLPIDEM TARTRATE [Concomitant]
  10. TOBRADEX [Concomitant]
  11. ALLEGRA [Concomitant]
  12. NEXIUM [Concomitant]
  13. CLOBEX [Concomitant]
  14. KERALAC NAILSTIK [Concomitant]
  15. PLETAL [Concomitant]
  16. PROCRIT [Concomitant]
  17. ACYCLOVIR [Concomitant]
  18. SUDAFED 12 HOUR [Concomitant]
  19. SODIUM CHLORIDE [Concomitant]
  20. CALCIUM +D [Concomitant]
  21. MULTI-VITAMINS [Concomitant]

REACTIONS (1)
  - BRONCHITIS [None]
